FAERS Safety Report 4515761-0 (Version None)
Quarter: 2004Q4

REPORT INFORMATION
  Report Type: 
  Country: None (occurrence: None)
  Receive Date: 20041201
  Receipt Date: 20041129
  Transmission Date: 20050328
  Serious: Yes (Hospitalization)
  Sender: FDA-Public Use
  Company Number: FR-MERCK-0411FRA00109

PATIENT
  Age: 89 Year
  Sex: Female

DRUGS (3)
  1. HYZAAR [Suspect]
     Indication: HYPERTENSION
     Route: 048
     Dates: start: 20021101, end: 20031216
  2. ZOPICLONE [Suspect]
     Indication: INSOMNIA
     Route: 048
     Dates: start: 19990601, end: 20031216
  3. DIGOXIN [Concomitant]
     Route: 048

REACTIONS (4)
  - DEHYDRATION [None]
  - FALL [None]
  - HYPONATRAEMIA [None]
  - WRIST FRACTURE [None]
